FAERS Safety Report 17956757 (Version 1)
Quarter: 2020Q2

REPORT INFORMATION
  Report Type: Spontaneous
  Country: US (occurrence: US)
  Receive Date: 20200628
  Receipt Date: 20200628
  Transmission Date: 20200714
  Serious: No
  Sender: FDA-Public Use
  Company Number: None

PATIENT
  Age: 30 Year
  Sex: Female
  Weight: 56.25 kg

DRUGS (6)
  1. MIDODRINE [Concomitant]
     Active Substance: MIDODRINE
  2. VITAMIN D [Concomitant]
     Active Substance: VITAMIN D NOS
  3. DULOXETINE. [Suspect]
     Active Substance: DULOXETINE
     Indication: FEELING ABNORMAL
     Route: 048
     Dates: start: 20180114, end: 20200624
  4. BIOTIN [Concomitant]
     Active Substance: BIOTIN
  5. DULOXETINE. [Suspect]
     Active Substance: DULOXETINE
     Indication: ANXIETY
     Route: 048
     Dates: start: 20180114, end: 20200624
  6. FLUDROCORTISONE [Concomitant]
     Active Substance: FLUDROCORTISONE

REACTIONS (1)
  - Drug withdrawal syndrome [None]

NARRATIVE: CASE EVENT DATE: 20200627
